FAERS Safety Report 6032165-2 (Version None)
Quarter: 2009Q1

REPORT INFORMATION
  Report Type: 
  Country: None (occurrence: None)
  Receive Date: 20090107
  Receipt Date: 20081225
  Transmission Date: 20090719
  Serious: Yes (Life-Threatening)
  Sender: FDA-Public Use
  Company Number: 2008JP005712

PATIENT
  Age: 68 Year
  Sex: Female
  Weight: 41.6 kg

DRUGS (9)
  1. PROGRAF [Suspect]
     Indication: RHEUMATOID ARTHRITIS
     Dosage: 1.5 MG, UID/QD, ORAL
     Route: 048
     Dates: start: 20081121, end: 20081203
  2. GASTER        (FAMOTIDINE) ORODISPERSIBLE CR [Suspect]
     Indication: GASTRITIS
     Dosage: 10 MG, BID, ORAL
     Route: 048
     Dates: start: 20081017
  3. AZULFIDINE [Suspect]
     Indication: RHEUMATOID ARTHRITIS
     Dosage: 500 MG, BID, ORAL
     Route: 048
     Dates: start: 20081011, end: 20081203
  4. PREDNISOLONE [Suspect]
     Indication: INTERSTITIAL LUNG DISEASE
     Dosage: 40 MG, ORAL; 35 MG, ORAL; 15 MG, BID, ORAL
     Route: 048
     Dates: start: 20081017, end: 20081107
  5. PREDNISOLONE [Suspect]
     Indication: INTERSTITIAL LUNG DISEASE
     Dosage: 40 MG, ORAL; 35 MG, ORAL; 15 MG, BID, ORAL
     Route: 048
     Dates: start: 20081108, end: 20081120
  6. PREDNISOLONE [Suspect]
     Indication: INTERSTITIAL LUNG DISEASE
     Dosage: 40 MG, ORAL; 35 MG, ORAL; 15 MG, BID, ORAL
     Route: 048
     Dates: start: 20081121
  7. FOSAMAC        (ALENDRONATE SODIUM) TABLET [Concomitant]
  8. BAKTAR        (SULFAMETHOXAZOLE, TRIMETHOPRIM) TABLET [Concomitant]
  9. MAGLAX (MAGNESIUM OXIDE) TABLET [Concomitant]

REACTIONS (5)
  - AGRANULOCYTOSIS [None]
  - APPARENT LIFE THREATENING EVENT [None]
  - BLOOD CULTURE POSITIVE [None]
  - PSEUDOMONAS INFECTION [None]
  - SEPSIS [None]
